FAERS Safety Report 20741600 (Version 4)
Quarter: 2025Q3

REPORT INFORMATION
  Report Type: Report from Study
  Country: US (occurrence: US)
  Receive Date: 20220422
  Receipt Date: 20250710
  Transmission Date: 20251021
  Serious: Yes (Hospitalization)
  Sender: JAZZ
  Company Number: US-GW PHARMA-202108USGW03928

PATIENT
  Age: 9 Year
  Sex: Female
  Weight: 23 kg

DRUGS (10)
  1. EPIDIOLEX [Suspect]
     Active Substance: CANNABIDIOL
     Indication: Epilepsy
     Dates: start: 20191001
  2. EPIDIOLEX [Suspect]
     Active Substance: CANNABIDIOL
     Dosage: 300 MILLIGRAM, BID VIA PO
     Dates: start: 201910
  3. SINGULAIR [Concomitant]
     Active Substance: MONTELUKAST SODIUM
     Indication: Product used for unknown indication
     Route: 065
  4. SINGULAIR [Concomitant]
     Active Substance: MONTELUKAST SODIUM
  5. DIURIL [CHLOROTHIAZIDE SODIUM] [Concomitant]
     Indication: Product used for unknown indication
     Route: 065
  6. DIURIL [CHLOROTHIAZIDE SODIUM] [Concomitant]
  7. FAMOTIDINE [Concomitant]
     Active Substance: FAMOTIDINE
     Indication: Product used for unknown indication
     Route: 065
  8. FAMOTIDINE [Concomitant]
     Active Substance: FAMOTIDINE
     Route: 065
  9. CUVPOSA [GLYCOPYRRONIUM BROMIDE] [Concomitant]
     Indication: Product used for unknown indication
     Route: 065
  10. CUVPOSA [GLYCOPYRRONIUM BROMIDE] [Concomitant]
     Route: 065

REACTIONS (3)
  - Oxygen saturation abnormal [Unknown]
  - Rhinovirus infection [Unknown]
  - Prescribed overdose [Unknown]

NARRATIVE: CASE EVENT DATE: 20210701
